FAERS Safety Report 8425083-3 (Version None)
Quarter: 2012Q2

REPORT INFORMATION
  Report Type: 
  Country: None (occurrence: None)
  Receive Date: 20120611
  Receipt Date: 20120601
  Transmission Date: 20120825
  Serious: Yes (Hospitalization, Other)
  Sender: FDA-Public Use
  Company Number: US-BAYER-2012-054923

PATIENT
  Age: 43 Year
  Sex: Female
  Weight: 130 kg

DRUGS (26)
  1. CALCIUM [Concomitant]
     Dosage: UNK
     Route: 048
  2. ACTACE [Concomitant]
  3. FLONASE [Concomitant]
  4. LANTUS [Concomitant]
  5. HUMULIN 70/30 [Concomitant]
     Dosage: 20 UNITS IN THE MORNING, 22 UNITS IN THE EVENING
  6. LEVOXYL [Concomitant]
     Dosage: 200 ?G, DAILY
     Route: 048
  7. YASMIN [Suspect]
     Indication: CONTRACEPTION
  8. SPIRONOLACTONE [Concomitant]
     Dosage: 50 MG, DAILY
     Route: 048
  9. CEFTRIAXONE [Concomitant]
  10. LOVOXIL [Concomitant]
  11. NAPROXEN (ALEVE) [Concomitant]
  12. HYDROCHLOROTHIAZDE TAB [Concomitant]
  13. METOPROLOL SUCCINATE EXTENDED RELEASE [Concomitant]
  14. NPH INSULIN [Concomitant]
     Dosage: 35 UNITS AT NIGHT
  15. ASPIRIN [Concomitant]
     Dosage: UNK
     Route: 048
  16. ZOSYN [Concomitant]
  17. LISINOPRIL [Concomitant]
  18. MULTI-VITAMIN [Concomitant]
     Dosage: UNK
     Route: 048
     Dates: start: 20050221
  19. SUDAFED 12 HOUR [Concomitant]
     Dosage: UNK
     Route: 048
  20. NOVOLOG [Concomitant]
  21. ACTOS [Concomitant]
     Dosage: 30 MG DAILY
     Route: 048
  22. PROVERA [Concomitant]
     Dosage: UNK
     Dates: start: 20040105, end: 20040310
  23. LEVOTHYROXINE SODIUM [Concomitant]
  24. INSULIN [Concomitant]
  25. VANCOMYCIN [Concomitant]
  26. BACTRIM [Concomitant]

REACTIONS (3)
  - PULMONARY EMBOLISM [None]
  - DEEP VEIN THROMBOSIS [None]
  - CHOLELITHIASIS [None]
